FAERS Safety Report 13285786 (Version 1)
Quarter: 2017Q1

REPORT INFORMATION
  Report Type: Spontaneous
  Country: US (occurrence: US)
  Receive Date: 20170301
  Receipt Date: 20170301
  Transmission Date: 20170428
  Serious: Yes (Other)
  Sender: FDA-Public Use
  Company Number: US-DEPOMED, INC.-US-2017DEP000437

PATIENT

DRUGS (1)
  1. NUCYNTA [Suspect]
     Active Substance: TAPENTADOL HYDROCHLORIDE
     Indication: MIGRAINE
     Dosage: 50 MG, PRN
     Route: 048

REACTIONS (3)
  - Ovarian disorder [Recovered/Resolved]
  - Product use issue [Recovered/Resolved]
  - Carpal tunnel syndrome [Recovered/Resolved]

NARRATIVE: CASE EVENT DATE: 201110
